FAERS Safety Report 8016946-1 (Version None)
Quarter: 2012Q1

REPORT INFORMATION
  Report Type: 
  Country: None (occurrence: None)
  Receive Date: 20120102
  Receipt Date: 20111221
  Transmission Date: 20120608
  Serious: Yes (Hospitalization)
  Sender: FDA-Public Use
  Company Number: JP-NOVOPROD-341927

PATIENT

DRUGS (1)
  1. NOVORAPID CHU FLEXPEN [Suspect]
     Indication: TYPE 2 DIABETES MELLITUS
     Route: 065

REACTIONS (3)
  - SUICIDE ATTEMPT [None]
  - HYPOGLYCAEMIC ENCEPHALOPATHY [None]
  - INTENTIONAL OVERDOSE [None]
